FAERS Safety Report 14967596 (Version 1)
Quarter: 2018Q2

REPORT INFORMATION
  Report Type: Spontaneous
  Country: US (occurrence: US)
  Receive Date: 20180511
  Receipt Date: 20180511
  Transmission Date: 20180711
  Serious: No
  Sender: FDA-Public Use
  Company Number: None

PATIENT
  Age: 43 Year
  Sex: Male

DRUGS (1)
  1. IMATINIB 400MG TEVA [Suspect]
     Active Substance: IMATINIB
     Indication: ILL-DEFINED DISORDER
     Route: 048
     Dates: start: 20161031

REACTIONS (1)
  - Blood urine present [None]
